FAERS Safety Report 7281439-6 (Version None)
Quarter: 2011Q1

REPORT INFORMATION
  Report Type: 
  Country: None (occurrence: None)
  Receive Date: 20110203
  Receipt Date: 20110203
  Transmission Date: 20110831
  Serious: Yes (Hospitalization)
  Sender: FDA-Public Use
  Company Number: None

PATIENT
  Age: 46 Year
  Sex: Male
  Weight: 59.8748 kg

DRUGS (1)
  1. CRESTOR [Suspect]
     Indication: BLOOD CHOLESTEROL INCREASED
     Dosage: 10MG ONCE DAILY PO
     Route: 048
     Dates: start: 20090409, end: 20110102

REACTIONS (3)
  - PAIN IN EXTREMITY [None]
  - NO THERAPEUTIC RESPONSE [None]
  - IMPAIRED WORK ABILITY [None]
